FAERS Safety Report 12156898 (Version 2)
Quarter: 2016Q1

REPORT INFORMATION
  Report Type: Spontaneous
  Country: US (occurrence: US)
  Receive Date: 20160307
  Receipt Date: 20160313
  Transmission Date: 20160526
  Serious: Yes (Other)
  Sender: FDA-Public Use
  Company Number: US-B.I. PHARMACEUTICALS,INC./RIDGEFIELD-2016-BI-13288NB

PATIENT
  Sex: Female

DRUGS (2)
  1. BI-SIFROL [Suspect]
     Active Substance: PRAMIPEXOLE
     Indication: PRODUCT USED FOR UNKNOWN INDICATION
     Dosage: 3 MG
     Route: 065
  2. BI-SIFROL [Suspect]
     Active Substance: PRAMIPEXOLE
     Dosage: 3 MG
     Route: 065

REACTIONS (2)
  - Cardiac disorder [Unknown]
  - Depression [Not Recovered/Not Resolved]
